FAERS Safety Report 7389189-2 (Version None)
Quarter: 2011Q1

REPORT INFORMATION
  Report Type: 
  Country: None (occurrence: None)
  Receive Date: 20110324
  Receipt Date: 20110218
  Transmission Date: 20110831
  Serious: Yes (Other)
  Sender: FDA-Public Use
  Company Number: PI-05415

PATIENT
  Age: 4 Month
  Sex: Female

DRUGS (2)
  1. CHLORPREP (2%CHG/70%IPA) WITH TINT (FD+C YELLOW #6) [Suspect]
     Indication: PREOPERATIVE CARE
     Dosage: 10.5ML, ONCE IN 2 PLACES, TOPICAL
     Route: 061
     Dates: start: 20101121
  2. CHLORAPREP(2%CHG/ 70%IPA) WITH TINT (FD+C YELLOW #6) [Suspect]
     Indication: PREOPERATIVE CARE
     Dosage: 10.5ML, ONCE IN 2 PLACES, TOPICAL
     Route: 061
     Dates: start: 20101121

REACTIONS (3)
  - POST PROCEDURAL COMPLICATION [None]
  - APPLICATION SITE BURN [None]
  - CHEMICAL BURN OF SKIN [None]
